FAERS Safety Report 22382839 (Version 1)
Quarter: 2023Q2

REPORT INFORMATION
  Report Type: Spontaneous
  Country: US (occurrence: None)
  Receive Date: 20230526
  Receipt Date: 20230526
  Transmission Date: 20230722
  Serious: No
  Sender: FDA-Public Use
  Company Number: None

PATIENT
  Age: 56 Year
  Sex: Female
  Weight: 98.1 kg

DRUGS (1)
  1. CEPHALEXIN [Suspect]
     Active Substance: CEPHALEXIN
     Indication: Infection
     Dosage: OTHER QUANTITY : 21 CAPSULE(S);?FREQUENCY : EVERY 6 HOURS;?
     Route: 048
     Dates: start: 20230525, end: 20230525

REACTIONS (4)
  - Rash [None]
  - Pruritus [None]
  - Swelling face [None]
  - Skin burning sensation [None]

NARRATIVE: CASE EVENT DATE: 20230525
